FAERS Safety Report 9424968 (Version 1)
Quarter: 2013Q3

REPORT INFORMATION
  Report Type: Spontaneous
  Country: US (occurrence: US)
  Receive Date: 20130729
  Receipt Date: 20130729
  Transmission Date: 20140515
  Serious: No
  Sender: FDA-Public Use
  Company Number: US-PFIZER INC-2013219941

PATIENT
  Age: 72 Year
  Sex: Female
  Weight: 68.03 kg

DRUGS (8)
  1. CHANTIX [Suspect]
     Indication: SMOKING CESSATION THERAPY
     Dosage: UNK
     Route: 048
  2. CHANTIX [Suspect]
     Dosage: UNK
     Route: 048
  3. CHANTIX [Suspect]
     Dosage: UNK
     Route: 048
  4. GABAPENTIN [Concomitant]
     Indication: NEURALGIA
     Dosage: 400 MG, 3X/DAY
  5. SIMVASTATIN [Concomitant]
     Indication: BLOOD CHOLESTEROL INCREASED
     Dosage: 40 MG, DAILY
  6. LOSARTAN [Concomitant]
     Indication: HYPERTENSION
     Dosage: 50 MG, DAILY
  7. VENLAFAXINE HYDROCHLORIDE [Concomitant]
     Indication: DEPRESSION
     Dosage: 37.5 MG, DAILY
     Route: 048
  8. LAMOTRIGINE [Concomitant]
     Indication: MOOD SWINGS
     Dosage: 25 MG, 3X/DAY

REACTIONS (2)
  - Nausea [Recovered/Resolved]
  - Lethargy [Recovered/Resolved]
